FAERS Safety Report 14501717 (Version 1)
Quarter: 2018Q1

REPORT INFORMATION
  Report Type: Spontaneous
  Country: US (occurrence: US)
  Receive Date: 20180206
  Receipt Date: 20180206
  Transmission Date: 20180509
  Serious: No
  Sender: FDA-Public Use
  Company Number: None

PATIENT
  Age: 50 Year
  Sex: Female

DRUGS (2)
  1. CRONO 5 PUMP CANE S.P.A. MEDICAL TECHNOLOGY [Suspect]
     Active Substance: DEVICE
  2. REMODULIN [Suspect]
     Active Substance: TREPROSTINIL
     Indication: PULMONARY ARTERIAL HYPERTENSION
     Dosage: 97NG/KG/MIN CONT IV
     Route: 042
     Dates: start: 20170801

REACTIONS (4)
  - Wrong technique in device usage process [None]
  - Dyspnoea [None]
  - Headache [None]
  - Infusion related reaction [None]

NARRATIVE: CASE EVENT DATE: 20180131
